FAERS Safety Report 24375667 (Version 2)
Quarter: 2024Q4

REPORT INFORMATION
  Report Type: Report from Study
  Country: DE (occurrence: DE)
  Receive Date: 20240928
  Receipt Date: 20241008
  Transmission Date: 20250115
  Serious: Yes (Hospitalization)
  Sender: BAXTER
  Company Number: DE-BAXTER-2024BAX024850

PATIENT
  Age: 32 Year
  Sex: Female

DRUGS (13)
  1. OLIMEL [Suspect]
     Active Substance: AMINO ACIDS\DEXTROSE\SOYBEAN OIL
     Indication: Short-bowel syndrome
     Dosage: 1000 ML/DAY
     Route: 042
     Dates: start: 20240423, end: 20240914
  2. OLIMEL [Suspect]
     Active Substance: AMINO ACIDS\DEXTROSE\SOYBEAN OIL
     Indication: Decreased appetite
  3. OLIMEL [Suspect]
     Active Substance: AMINO ACIDS\DEXTROSE\SOYBEAN OIL
     Indication: Parenteral nutrition
  4. ERGOCALCIFEROL\PHYTONADIONE\RETINOL\TOCOPHEROL [Suspect]
     Active Substance: ERGOCALCIFEROL\PHYTONADIONE\RETINOL\TOCOPHEROL
     Indication: Decreased appetite
     Dosage: 10 ML/DAY
     Route: 042
     Dates: start: 20240423, end: 20240914
  5. ERGOCALCIFEROL\PHYTONADIONE\RETINOL\TOCOPHEROL [Suspect]
     Active Substance: ERGOCALCIFEROL\PHYTONADIONE\RETINOL\TOCOPHEROL
     Indication: Short-bowel syndrome
  6. ERGOCALCIFEROL\PHYTONADIONE\RETINOL\TOCOPHEROL [Suspect]
     Active Substance: ERGOCALCIFEROL\PHYTONADIONE\RETINOL\TOCOPHEROL
     Indication: Parenteral nutrition
  7. VITAMINS [Suspect]
     Active Substance: VITAMINS
     Indication: Decreased appetite
     Dosage: 10 ML/DAY
     Route: 042
     Dates: start: 20240423, end: 20240914
  8. VITAMINS [Suspect]
     Active Substance: VITAMINS
     Indication: Short-bowel syndrome
  9. VITAMINS [Suspect]
     Active Substance: VITAMINS
     Indication: Parenteral nutrition
  10. ELECTROLYTES NOS\MINERALS [Suspect]
     Active Substance: ELECTROLYTES NOS\MINERALS
     Indication: Short-bowel syndrome
     Dosage: (MANUFACTURER: LABORATOIRE AGUETTANT S.A.S.)10 ML/DAY
     Route: 042
     Dates: start: 20240423, end: 20240914
  11. ELECTROLYTES NOS\MINERALS [Suspect]
     Active Substance: ELECTROLYTES NOS\MINERALS
     Indication: Decreased appetite
  12. ELECTROLYTES NOS\MINERALS [Suspect]
     Active Substance: ELECTROLYTES NOS\MINERALS
     Indication: Parenteral nutrition
  13. UNSPECIFIED INGREDIENT [Suspect]
     Active Substance: UNSPECIFIED INGREDIENT
     Dosage: UNK
     Route: 065

REACTIONS (1)
  - Injection site inflammation [Unknown]

NARRATIVE: CASE EVENT DATE: 20240915
